FAERS Safety Report 5389499-4 (Version None)
Quarter: 2007Q3

REPORT INFORMATION
  Report Type: 
  Country: None (occurrence: None)
  Receive Date: 20070717
  Receipt Date: 20070705
  Transmission Date: 20080115
  Serious: Yes (Other)
  Sender: FDA-Public Use
  Company Number: JP-PFIZER INC-2007055694

PATIENT
  Age: 69 Year
  Sex: Male

DRUGS (2)
  1. HALCION [Suspect]
     Route: 048
  2. DEPAS [Concomitant]
     Route: 048

REACTIONS (3)
  - CEREBROVASCULAR STENOSIS [None]
  - MEMORY IMPAIRMENT [None]
  - NERVOUS SYSTEM DISORDER [None]
